FAERS Safety Report 21295006 (Version 4)
Quarter: 2023Q1

REPORT INFORMATION
  Report Type: Report from Study
  Country: US (occurrence: US)
  Receive Date: 20220905
  Receipt Date: 20230215
  Transmission Date: 20230418
  Serious: Yes (Hospitalization, Other)
  Sender: FDA-Public Use
  Company Number: US-TAKEDA-US202006433

PATIENT
  Sex: Female

DRUGS (2)
  1. HUMAN IMMUNOGLOBULIN G\HYALURONIDASE RECOMBINANT HUMAN [Suspect]
     Active Substance: HUMAN IMMUNOGLOBULIN G\HYALURONIDASE RECOMBINANT HUMAN
     Indication: Immunodeficiency common variable
     Dosage: 40 GRAM, MONTHLY
     Route: 065
  2. AMLODIPINE [Concomitant]
     Active Substance: AMLODIPINE BESYLATE
     Indication: Blood pressure increased
     Dosage: UNK
     Route: 065

REACTIONS (13)
  - Illness [Unknown]
  - Gastrointestinal haemorrhage [Unknown]
  - Gastrointestinal neoplasm [Unknown]
  - Blister [Unknown]
  - Drug eruption [Unknown]
  - Blood pressure increased [Unknown]
  - Ulnar nerve injury [Unknown]
  - Post procedural complication [Unknown]
  - Presyncope [Unknown]
  - Temperature intolerance [Unknown]
  - Arthritis [Unknown]
  - Multiple allergies [Unknown]
  - Erythema [Unknown]
